FAERS Safety Report 15533923 (Version 1)
Quarter: 2018Q4

REPORT INFORMATION
  Report Type: Spontaneous
  Country: FR (occurrence: FR)
  Receive Date: 20181019
  Receipt Date: 20181019
  Transmission Date: 20190205
  Serious: Yes (Death, Other)
  Sender: FDA-Public Use
  Company Number: FR-PFIZER INC-2018410818

PATIENT
  Age: 64 Year
  Sex: Male
  Weight: 79 kg

DRUGS (11)
  1. RITUXIMAB. [Concomitant]
     Active Substance: RITUXIMAB
     Indication: MANTLE CELL LYMPHOMA
     Dosage: 375 MG/KG, UNK
     Route: 042
     Dates: end: 20180709
  2. VISMED [Concomitant]
     Active Substance: HYALURONATE SODIUM
     Dosage: 1 DF, 1X/DAY
     Route: 031
  3. CARTEOL F [Concomitant]
     Dosage: 1 DF, 1X/DAY
     Route: 031
  4. DACRYOSERUM [BORIC ACID;SODIUM BORATE] [Concomitant]
     Dosage: 1 DF, 1X/DAY
     Route: 031
  5. SOLU-MEDROL [Concomitant]
     Active Substance: METHYLPREDNISOLONE SODIUM SUCCINATE
     Indication: MANTLE CELL LYMPHOMA
     Dosage: 100 MG, 1X/DAY
     Route: 048
     Dates: start: 20180525, end: 20180529
  6. XANAX [Concomitant]
     Active Substance: ALPRAZOLAM
     Dosage: 3 MG, 1X/DAY
     Route: 048
  7. CYCLOPHOSPHAMIDE. [Concomitant]
     Active Substance: CYCLOPHOSPHAMIDE
     Indication: MANTLE CELL LYMPHOMA
     Dosage: 750 MG/M2, UNK
     Route: 042
     Dates: end: 20180709
  8. NOCTAMIDE [Concomitant]
     Active Substance: LORMETAZEPAM
     Dosage: 4 MG, 1X/DAY
     Route: 048
  9. DOXORUBICINE [DOXORUBICIN] [Concomitant]
     Indication: MANTLE CELL LYMPHOMA
     Dosage: 50 MG/M2, UNK
     Route: 042
     Dates: end: 20180709
  10. VINCRISTINE SULFATE. [Suspect]
     Active Substance: VINCRISTINE SULFATE
     Indication: MANTLE CELL LYMPHOMA
     Dosage: 1.4 MG/M2, 1X/DAY
     Route: 042
     Dates: start: 20180412, end: 20180525
  11. FUROSEMIDE. [Concomitant]
     Active Substance: FUROSEMIDE
     Dosage: 60 MG, 1X/DAY
     Route: 042

REACTIONS (1)
  - Neuropathy peripheral [Not Recovered/Not Resolved]

NARRATIVE: CASE EVENT DATE: 20180525
